FAERS Safety Report 18456264 (Version 1)
Quarter: 2020Q4

REPORT INFORMATION
  Report Type: Spontaneous
  Country: US (occurrence: US)
  Receive Date: 20201102
  Receipt Date: 20201102
  Transmission Date: 20210114
  Serious: Yes (Death)
  Sender: FDA-Public Use
  Company Number: None

PATIENT
  Age: 25 Year
  Sex: Male

DRUGS (5)
  1. TACROLIMUS 0.5MG [Suspect]
     Active Substance: TACROLIMUS
     Indication: LEUKAEMIA
     Dosage: QUANTITY:2 TABS AT 9:30AM, ;?
     Route: 048
     Dates: start: 201805, end: 20200909
  2. VITAMIN D [Concomitant]
     Active Substance: VITAMIN D NOS
  3. VITAMIN E [Concomitant]
     Active Substance: .ALPHA.-TOCOPHEROL
  4. POTASSIUM [Concomitant]
     Active Substance: POTASSIUM
  5. FAMOTIDINE. [Concomitant]
     Active Substance: FAMOTIDINE

REACTIONS (2)
  - COVID-19 [None]
  - Death [None]

NARRATIVE: CASE EVENT DATE: 20200925
